APPROVED DRUG PRODUCT: CLARITHROMYCIN
Active Ingredient: CLARITHROMYCIN
Strength: 250MG
Dosage Form/Route: TABLET;ORAL
Application: A065174 | Product #001
Applicant: SUN PHARMACEUTICAL INDUSTRIES LTD
Approved: Sep 24, 2004 | RLD: No | RS: No | Type: DISCN